FAERS Safety Report 11516598 (Version 5)
Quarter: 2016Q3

REPORT INFORMATION
  Report Type: Report from Study
  Country: DE (occurrence: DE)
  Receive Date: 20150917
  Receipt Date: 20160701
  Transmission Date: 20161109
  Serious: Yes (Hospitalization)
  Sender: FDA-Public Use
  Company Number: DE-BAYER-2015-419911

PATIENT
  Age: 67 Year
  Sex: Male

DRUGS (5)
  1. STIVARGA [Suspect]
     Active Substance: REGORAFENIB
     Indication: COLORECTAL CANCER METASTATIC
     Dosage: UNK
     Dates: start: 20150805
  2. UREA. [Concomitant]
     Active Substance: UREA
     Indication: DRUG TOXICITY PROPHYLAXIS
     Dosage: UNK
     Dates: start: 20150709
  3. STIVARGA [Suspect]
     Active Substance: REGORAFENIB
     Indication: COLORECTAL CANCER METASTATIC
     Dosage: UNK
  4. STIVARGA [Suspect]
     Active Substance: REGORAFENIB
     Indication: COLORECTAL CANCER METASTATIC
     Dosage: 160 MG, QD (4 TABLETS ? 40 MG/DAY)
     Route: 048
     Dates: start: 20150709, end: 20150721
  5. STIVARGA [Suspect]
     Active Substance: REGORAFENIB
     Indication: COLORECTAL CANCER METASTATIC
     Dosage: UNK
     Route: 048
     Dates: end: 20151209

REACTIONS (2)
  - Pyrexia [Recovered/Resolved]
  - Dyspnoea [Recovered/Resolved]

NARRATIVE: CASE EVENT DATE: 20150721
